FAERS Safety Report 17246681 (Version 6)
Quarter: 2020Q2

REPORT INFORMATION
  Report Type: Spontaneous
  Country: US (occurrence: US)
  Receive Date: 20200108
  Receipt Date: 20200615
  Transmission Date: 20200713
  Serious: Yes (Other)
  Sender: FDA-Public Use
  Company Number: US-PFIZER INC-2020003481

PATIENT
  Age: 60 Year
  Sex: Female
  Weight: 72.57 kg

DRUGS (3)
  1. PREMARIN [Suspect]
     Active Substance: ESTROGENS, CONJUGATED
     Dosage: UNK
  2. METHADONE [Concomitant]
     Active Substance: METHADONE HYDROCHLORIDE
     Indication: COMPLEX REGIONAL PAIN SYNDROME
     Dosage: 5 MG, 4X/DAY (EVERY 6 HOURS)
     Dates: end: 20181224
  3. PREMARIN [Suspect]
     Active Substance: ESTROGENS, CONJUGATED
     Indication: HYSTERECTOMY
     Dosage: 1.25, DAILY
     Dates: start: 1979

REACTIONS (11)
  - Malaise [Unknown]
  - Drug dependence [Unknown]
  - Drug withdrawal syndrome [Recovered/Resolved]
  - Hyperhidrosis [Recovered/Resolved]
  - Skin odour abnormal [Recovered/Resolved]
  - Eyelid ptosis [Unknown]
  - Myasthenia gravis [Unknown]
  - Cerebrovascular accident [Unknown]
  - Fungal skin infection [Recovered/Resolved]
  - Vein collapse [Unknown]
  - Dehydration [Unknown]

NARRATIVE: CASE EVENT DATE: 2014
